FAERS Safety Report 20448728 (Version 1)
Quarter: 2022Q1

REPORT INFORMATION
  Report Type: Spontaneous
  Country: CN (occurrence: CN)
  Receive Date: 20220209
  Receipt Date: 20220209
  Transmission Date: 20220423
  Serious: Yes (Other)
  Sender: FDA-Public Use
  Company Number: CN-PFIZER INC-202101874450

PATIENT
  Age: 36 Year
  Sex: Female

DRUGS (2)
  1. IBRANCE [Suspect]
     Active Substance: PALBOCICLIB
     Dosage: 100 MG, ONCE A DAY, 3-WEEK ADMINISTRATION AND 1-WEEK OFF
     Route: 048
     Dates: start: 202105
  2. LETROZOLE [Concomitant]
     Active Substance: LETROZOLE

REACTIONS (4)
  - White blood cell count decreased [Unknown]
  - Granulocyte count decreased [Unknown]
  - Herpes oesophagitis [Unknown]
  - Mouth ulceration [Unknown]
